FAERS Safety Report 20175757 (Version 2)
Quarter: 2022Q1

REPORT INFORMATION
  Report Type: Spontaneous
  Country: AT (occurrence: AT)
  Receive Date: 20211213
  Receipt Date: 20220111
  Transmission Date: 20220423
  Serious: Yes (Disabling)
  Sender: FDA-Public Use
  Company Number: None

PATIENT
  Sex: Female

DRUGS (1)
  1. ABILIFY [Suspect]
     Active Substance: ARIPIPRAZOLE
     Indication: Product used for unknown indication
     Dosage: BEEN TAKING FOR OVER 1 YEAR  AND STOPPED 3 WEEKS AGO
     Route: 065

REACTIONS (4)
  - Disabled relative [Unknown]
  - Muscle twitching [Not Recovered/Not Resolved]
  - Dyskinesia [Not Recovered/Not Resolved]
  - Therapy non-responder [Unknown]
